FAERS Safety Report 10366937 (Version 1)
Quarter: 2014Q3

REPORT INFORMATION
  Report Type: Spontaneous
  Country: US (occurrence: US)
  Receive Date: 20140807
  Receipt Date: 20140807
  Transmission Date: 20150326
  Serious: No
  Sender: FDA-Public Use
  Company Number: US-009507513-1407USA012641

PATIENT
  Sex: Female

DRUGS (2)
  1. IMPLANON [Suspect]
     Active Substance: ETONOGESTREL
     Indication: MENSTRUAL DISORDER
     Dosage: UNK
     Route: 059
     Dates: start: 201204
  2. IMPLANON [Suspect]
     Active Substance: ETONOGESTREL
     Indication: ANAEMIA

REACTIONS (2)
  - Arthropathy [Unknown]
  - Drug administration error [Unknown]

NARRATIVE: CASE EVENT DATE: 201204
